FAERS Safety Report 15592850 (Version 2)
Quarter: 2018Q4

REPORT INFORMATION
  Report Type: Spontaneous
  Country: JP (occurrence: JP)
  Receive Date: 20181107
  Receipt Date: 20181121
  Transmission Date: 20190205
  Serious: Yes (Life-Threatening, Hospitalization)
  Sender: FDA-Public Use
  Company Number: PHJP2018JP018728

PATIENT
  Age: 75 Year
  Sex: Male
  Weight: 72 kg

DRUGS (1)
  1. FLUORESCITE [Suspect]
     Active Substance: FLUORESCEIN SODIUM
     Indication: ANGIOGRAM RETINA
     Dosage: 500 MG, ONCE/SINGLE
     Route: 040
     Dates: start: 20180315, end: 20180315

REACTIONS (16)
  - Dyspnoea [Unknown]
  - Erythema [Unknown]
  - Flushing [Unknown]
  - Hypotension [Unknown]
  - Feeling hot [Unknown]
  - Consciousness fluctuating [Unknown]
  - Vomiting [Unknown]
  - Laryngeal oedema [Unknown]
  - Cough [Unknown]
  - Wheezing [Unknown]
  - Bronchospasm [Unknown]
  - Anaphylactic shock [Recovered/Resolved]
  - Urticaria [Unknown]
  - Nausea [Unknown]
  - Dysphonia [Unknown]
  - Cyanosis [Unknown]

NARRATIVE: CASE EVENT DATE: 20180315
